FAERS Safety Report 11133247 (Version 1)
Quarter: 2015Q2

REPORT INFORMATION
  Report Type: Report from Study
  Country: CA (occurrence: CA)
  Receive Date: 20150522
  Receipt Date: 20150522
  Transmission Date: 20150821
  Serious: Yes (Hospitalization, Other)
  Sender: FDA-Public Use
  Company Number: PHHY2014CA158252

PATIENT
  Age: 51 Year
  Sex: Male

DRUGS (2)
  1. GLEEVEC [Suspect]
     Active Substance: IMATINIB MESYLATE
     Dosage: 400 MG, QD
     Route: 048
  2. GLEEVEC [Suspect]
     Active Substance: IMATINIB MESYLATE
     Indication: GASTROINTESTINAL STROMAL TUMOUR
     Dosage: 400 MG, QD
     Route: 048
     Dates: start: 20140530, end: 201412

REACTIONS (9)
  - Dyspepsia [Unknown]
  - Malignant neoplasm progression [Unknown]
  - Hiccups [Unknown]
  - Nausea [Unknown]
  - Urticaria [Unknown]
  - Oesophageal stenosis [Unknown]
  - Pruritus [Unknown]
  - Gastrointestinal stromal tumour [Unknown]
  - Scar [Unknown]

NARRATIVE: CASE EVENT DATE: 20150121
